FAERS Safety Report 15854495 (Version 1)
Quarter: 2019Q1

REPORT INFORMATION
  Report Type: Spontaneous
  Country: US (occurrence: US)
  Receive Date: 20190122
  Receipt Date: 20190122
  Transmission Date: 20190417
  Serious: Yes (Disabling)
  Sender: FDA-Public Use
  Company Number: None

PATIENT
  Age: 40 Year
  Sex: Male
  Weight: 91.8 kg

DRUGS (6)
  1. QUIFENESIN [Concomitant]
  2. AXERION [Concomitant]
  3. LEVOFLOXACIN. [Suspect]
     Active Substance: LEVOFLOXACIN
     Indication: SINUSITIS
     Dosage: ?          QUANTITY:10 TABLET(S);?
     Route: 048
     Dates: start: 20190116, end: 20190117
  4. PSEUDOEPHEDRINE. [Concomitant]
     Active Substance: PSEUDOEPHEDRINE HYDROCHLORIDE
  5. ACETAMINOPHEN. [Concomitant]
     Active Substance: ACETAMINOPHEN
  6. ZANAFLEX [Concomitant]
     Active Substance: TIZANIDINE HYDROCHLORIDE

REACTIONS (9)
  - Nausea [None]
  - Dizziness [None]
  - Drug interaction [None]
  - Pruritus generalised [None]
  - Chest pain [None]
  - Hypopnoea [None]
  - Blood pressure increased [None]
  - Diarrhoea [None]
  - Hyperhidrosis [None]

NARRATIVE: CASE EVENT DATE: 20190116
